FAERS Safety Report 4821338-X (Version None)
Quarter: 2005Q4

REPORT INFORMATION
  Report Type: 
  Country: None (occurrence: None)
  Receive Date: 20051107
  Receipt Date: 20050909
  Transmission Date: 20060501
  Serious: No
  Sender: FDA-Public Use
  Company Number: US-GLAXOSMITHKLINE-A0573579A

PATIENT
  Age: 70 Year
  Sex: Female

DRUGS (4)
  1. AVANDAMET [Suspect]
     Indication: PANCREATITIS
     Dosage: 1TAB TWICE PER DAY
     Route: 048
     Dates: start: 20040401
  2. UNKNOWN MEDICATION [Concomitant]
  3. SYNTHROID [Concomitant]
  4. GEMFIBROZIL [Concomitant]

REACTIONS (3)
  - FATIGUE [None]
  - OEDEMA PERIPHERAL [None]
  - WEIGHT INCREASED [None]
